FAERS Safety Report 7370806-8 (Version None)
Quarter: 2011Q1

REPORT INFORMATION
  Report Type: 
  Country: None (occurrence: None)
  Receive Date: 20110324
  Receipt Date: 20110315
  Transmission Date: 20110831
  Serious: Yes (Hospitalization)
  Sender: FDA-Public Use
  Company Number: US-BIOGENIDEC-2011BI004465

PATIENT
  Age: 61 Year
  Sex: Female

DRUGS (2)
  1. STEROIDS (NOS) [Concomitant]
  2. AVONEX [Suspect]
     Indication: MULTIPLE SCLEROSIS
     Route: 030
     Dates: start: 19990501

REACTIONS (4)
  - LOWER RESPIRATORY TRACT INFECTION BACTERIAL [None]
  - LUNG DISORDER [None]
  - COLLAPSE OF LUNG [None]
  - LUNG NEOPLASM [None]
